FAERS Safety Report 6382748-5 (Version None)
Quarter: 2009Q3

REPORT INFORMATION
  Report Type: 
  Country: None (occurrence: None)
  Receive Date: 20090928
  Receipt Date: 20090928
  Transmission Date: 20100115
  Serious: Yes (Life-Threatening)
  Sender: FDA-Public Use
  Company Number: None

PATIENT
  Age: 60 Year
  Sex: Female
  Weight: 127.4608 kg

DRUGS (1)
  1. REMICADE [Suspect]
     Indication: RHEUMATOID ARTHRITIS
     Dosage: 1,300 MG 6 WEEKLY IV DRIP
     Route: 041
     Dates: start: 20010802, end: 20081001

REACTIONS (3)
  - ENDOMETRIAL CANCER [None]
  - METASTASES TO UTERUS [None]
  - RENAL CELL CARCINOMA [None]
